FAERS Safety Report 18595497 (Version 2)
Quarter: 2020Q4

REPORT INFORMATION
  Report Type: Spontaneous
  Country: JP (occurrence: JP)
  Receive Date: 20201209
  Receipt Date: 20201211
  Transmission Date: 20210114
  Serious: Yes (Hospitalization, Other)
  Sender: FDA-Public Use
  Company Number: JP-PFIZER INC-2020482289

PATIENT

DRUGS (7)
  1. CELECOX [Suspect]
     Active Substance: CELECOXIB
     Indication: SCIATICA
  2. PREDONINE [Suspect]
     Active Substance: PREDNISOLONE
     Indication: PAIN
     Dosage: UNK
     Route: 065
  3. GASTER [Concomitant]
     Active Substance: FAMOTIDINE
     Indication: RHEUMATOID ARTHRITIS
     Dosage: UNK
     Route: 048
  4. CELECOX [Suspect]
     Active Substance: CELECOXIB
     Indication: HERPES ZOSTER
  5. PROGRAF [Suspect]
     Active Substance: TACROLIMUS
     Indication: RHEUMATOID ARTHRITIS
     Dosage: UNK
     Route: 048
  6. PARIET [Concomitant]
     Active Substance: RABEPRAZOLE SODIUM
     Indication: GASTRIC ULCER
     Dosage: UNK
     Route: 048
  7. CELECOX [Suspect]
     Active Substance: CELECOXIB
     Indication: PAIN
     Dosage: 200 MG, TWICE DAILY, IN THE MORNING AND EVENING
     Route: 048
     Dates: start: 202006

REACTIONS (13)
  - Drug ineffective for unapproved indication [Unknown]
  - Physical deconditioning [Unknown]
  - Gastric ulcer [Unknown]
  - Osteoporosis [Unknown]
  - Gait disturbance [Unknown]
  - Abdominal discomfort [Unknown]
  - Back pain [Unknown]
  - Balance disorder [Unknown]
  - Dyspepsia [Unknown]
  - Faeces discoloured [Unknown]
  - Dizziness [Unknown]
  - Failure to suspend medication [Unknown]
  - Lumbar vertebral fracture [Unknown]
